FAERS Safety Report 8124253-1 (Version None)
Quarter: 2012Q1

REPORT INFORMATION
  Report Type: 
  Country: None (occurrence: None)
  Receive Date: 20120209
  Receipt Date: 20120131
  Transmission Date: 20120608
  Serious: Yes (Hospitalization)
  Sender: FDA-Public Use
  Company Number: US-BAYER-2011-053818

PATIENT
  Age: 33 Year
  Sex: Female
  Weight: 78 kg

DRUGS (9)
  1. LISINOPRIL AND HYDROCHLOROTHIAZIDE [Concomitant]
     Dosage: UNK UNK, QD
     Route: 048
  2. PHENTERMINE [Concomitant]
     Dosage: 37.5 MG, QD
     Route: 048
     Dates: start: 20070724
  3. ALLEGRA-D [FEXOFENADINE HYDROCHLORIDE,PSEUDOEPHEDRINE HYDROCHLORID [Concomitant]
     Dosage: UNK UNK, BID
     Route: 048
     Dates: start: 20070923
  4. YASMIN [Suspect]
     Indication: CONTRACEPTION
  5. DROSPIRENONE AND ETHINYL ESTRADIOL [Suspect]
     Indication: CONTRACEPTION
     Dosage: UNK
     Dates: start: 20080701, end: 20091201
  6. NASONEX [Concomitant]
     Dosage: UNK UNK, BID
     Route: 045
  7. ACIPHEX [Concomitant]
     Dosage: 20 MG, QD
     Route: 048
  8. METHYLPREDNISOLONE [Concomitant]
     Dosage: 4 MG, UNK
     Route: 048
     Dates: start: 20070718
  9. AZITHROMYCIN [Concomitant]
     Dosage: UNK UNK, QD
     Route: 048
     Dates: start: 20070718

REACTIONS (5)
  - NAUSEA [None]
  - DIARRHOEA [None]
  - GALLBLADDER DISORDER [None]
  - ABDOMINAL PAIN [None]
  - CHOLECYSTITIS CHRONIC [None]
